FAERS Safety Report 22041508 (Version 1)
Quarter: 2023Q1

REPORT INFORMATION
  Report Type: Spontaneous
  Country: CA (occurrence: CA)
  Receive Date: 20230227
  Receipt Date: 20230227
  Transmission Date: 20230418
  Serious: Yes (Congenital Anomaly, Other)
  Sender: FDA-Public Use
  Company Number: CA-FreseniusKabi-FK202302378

PATIENT
  Age: 6 Month
  Sex: Female

DRUGS (20)
  1. LEVOTHYROXINE SODIUM [Suspect]
     Active Substance: LEVOTHYROXINE SODIUM
     Indication: Product used for unknown indication
     Dosage: DOSAGE FORM - NOT SPECIFIED
     Route: 064
  2. LEVOTHYROXINE SODIUM [Suspect]
     Active Substance: LEVOTHYROXINE SODIUM
     Dosage: DOSAGE FORM - NOT SPECIFIED
     Route: 064
  3. CYCLOBENZAPRINE [Suspect]
     Active Substance: CYCLOBENZAPRINE
     Indication: Product used for unknown indication
     Dosage: DOSAGE FROM - TABLET
     Route: 064
  4. CYCLOBENZAPRINE [Suspect]
     Active Substance: CYCLOBENZAPRINE
     Dosage: DOSAGE FROM - TABLET
     Route: 064
  5. DOCUSATE SODIUM [Suspect]
     Active Substance: DOCUSATE SODIUM
     Indication: Product used for unknown indication
     Dosage: DOSAGE FROM - NOT SPECIFIED
     Route: 064
  6. DOCUSATE SODIUM [Suspect]
     Active Substance: DOCUSATE SODIUM
     Dosage: DOSAGE FROM - NOT SPECIFIED
     Route: 064
  7. DOMPERIDONE [Suspect]
     Active Substance: DOMPERIDONE
     Indication: Product used for unknown indication
     Dosage: DOSAGE FROM - TABLET
     Route: 064
  8. DOMPERIDONE [Suspect]
     Active Substance: DOMPERIDONE
     Dosage: DOSAGE FROM - TABLET
     Route: 064
  9. DULOXETINE HYDROCHLORIDE [Suspect]
     Active Substance: DULOXETINE HYDROCHLORIDE
     Indication: Product used for unknown indication
     Dosage: DOSAGE FROM - CAPSULE DELAYED RELEASE
     Route: 065
  10. DULOXETINE HYDROCHLORIDE [Suspect]
     Active Substance: DULOXETINE HYDROCHLORIDE
     Dosage: DOSAGE FROM - CAPSULE DELAYED RELEASE
     Route: 065
  11. UNSPECIFIED INGREDIENT [Suspect]
     Active Substance: UNSPECIFIED INGREDIENT
     Indication: Product used for unknown indication
     Dosage: DOSAGE FROM - GLOBULES ORAL
     Route: 064
  12. UNSPECIFIED INGREDIENT [Suspect]
     Active Substance: UNSPECIFIED INGREDIENT
     Dosage: DOSAGE FROM - GLOBULES ORAL
     Route: 064
  13. FERROUS SULFATE ANHYDROUS [Suspect]
     Active Substance: FERROUS SULFATE ANHYDROUS
     Indication: Product used for unknown indication
     Dosage: DOSAGE FROM - NOT SPECIFIED
     Route: 064
  14. FERROUS SULFATE ANHYDROUS [Suspect]
     Active Substance: FERROUS SULFATE ANHYDROUS
     Dosage: DOSAGE FROM - NOT SPECIFIED
     Route: 064
  15. METHYLPHENIDATE [Suspect]
     Active Substance: METHYLPHENIDATE
     Indication: Product used for unknown indication
     Route: 064
  16. METHYLPHENIDATE [Suspect]
     Active Substance: METHYLPHENIDATE
     Route: 064
  17. OMEPRAZOLE [Suspect]
     Active Substance: OMEPRAZOLE
     Indication: Product used for unknown indication
     Dosage: DOSAGE FROM - NOT SPECIFIED
     Route: 064
  18. OMEPRAZOLE [Suspect]
     Active Substance: OMEPRAZOLE
     Dosage: DOSAGE FROM - NOT SPECIFIED
     Route: 064
  19. URSODIOL [Suspect]
     Active Substance: URSODIOL
     Indication: Product used for unknown indication
     Dosage: DOSAGE FROM - NOT SPECIFIED
     Route: 064
  20. URSODIOL [Suspect]
     Active Substance: URSODIOL
     Dosage: DOSAGE FROM - NOT SPECIFIED
     Route: 064

REACTIONS (3)
  - Poor sucking reflex [Recovered/Resolved]
  - Pulmonary malformation [Recovered/Resolved]
  - Foetal exposure timing unspecified [Recovered/Resolved]
